FAERS Safety Report 6797825-4 (Version None)
Quarter: 2010Q2

REPORT INFORMATION
  Report Type: 
  Country: None (occurrence: None)
  Receive Date: 20100623
  Receipt Date: 20100608
  Transmission Date: 20101027
  Serious: Yes (Hospitalization)
  Sender: FDA-Public Use
  Company Number: 2010AL003464

PATIENT
  Age: 54 Year
  Sex: Male

DRUGS (1)
  1. DICLOFENAC SODIUM DELAYED-RELEASE TABLETS, 75 MG (PUREPAC) (DICLOFENAC [Suspect]
     Indication: ARTHRITIS
     Dosage: 75 MG;BID;PO
     Route: 048
     Dates: start: 20050501, end: 20100604

REACTIONS (6)
  - CONDITION AGGRAVATED [None]
  - EYELID PTOSIS [None]
  - MIGRAINE WITH AURA [None]
  - NERVE COMPRESSION [None]
  - PUPILS UNEQUAL [None]
  - VASCULAR RUPTURE [None]
